FAERS Safety Report 8625425-X (Version None)
Quarter: 2012Q3

REPORT INFORMATION
  Report Type: 
  Country: None (occurrence: None)
  Receive Date: 20120827
  Receipt Date: 20120816
  Transmission Date: 20120928
  Serious: Yes (Death, Hospitalization)
  Sender: FDA-Public Use
  Company Number: US-ACTELION-A-NJ2012-69902

PATIENT
  Age: 79 Year
  Sex: Male

DRUGS (10)
  1. TRACLEER [Suspect]
     Indication: PULMONARY ARTERIAL HYPERTENSION
     Dosage: 125 MG, UNK
     Route: 048
     Dates: end: 20120801
  2. FOLIC ACID [Concomitant]
  3. ADCIRCA [Concomitant]
  4. TERAZOSIN HYDROCHLORIDE [Concomitant]
  5. ASPIRIN [Concomitant]
  6. PREDNISONE TAB [Concomitant]
  7. CITALOPRAM HYDROBROMIDE [Concomitant]
  8. CALCIUM +D [Concomitant]
  9. FINASTERIDE [Concomitant]
  10. MULTI-VITAMIN [Concomitant]

REACTIONS (4)
  - METASTATIC CARCINOMA OF THE BLADDER [None]
  - CARDIAC ARREST [None]
  - VENTRICULAR TACHYCARDIA [None]
  - ATRIOVENTRICULAR BLOCK COMPLETE [None]
